FAERS Safety Report 6903226-8 (Version None)
Quarter: 2010Q3

REPORT INFORMATION
  Report Type: 
  Country: None (occurrence: None)
  Receive Date: 20100803
  Receipt Date: 20080903
  Transmission Date: 20110219
  Serious: No
  Sender: FDA-Public Use
  Company Number: US-PFIZER INC-2008075082

PATIENT
  Sex: Female
  Weight: 64.1 kg

DRUGS (7)
  1. LYRICA [Suspect]
     Indication: NEURALGIA
     Dates: start: 20080716
  2. CELEBREX [Concomitant]
  3. TERIPARATIDE [Concomitant]
  4. PREMARIN [Concomitant]
  5. CALCIUM [Concomitant]
  6. ACETYLSALICYLIC ACID SRT [Concomitant]
  7. ANTIHYPERTENSIVES [Concomitant]

REACTIONS (3)
  - DRUG INEFFECTIVE [None]
  - FEELING ABNORMAL [None]
  - TINNITUS [None]
